FAERS Safety Report 9922161 (Version 1)
Quarter: 2014Q1

REPORT INFORMATION
  Report Type: Report from Study
  Country: US (occurrence: US)
  Receive Date: 20140225
  Receipt Date: 20140225
  Transmission Date: 20141002
  Serious: Yes (Death, Hospitalization)
  Sender: FDA-Public Use
  Company Number: US-GLAXOSMITHKLINE-A1055796A

PATIENT
  Age: 84 Year
  Sex: Male
  Weight: 69.3 kg

DRUGS (22)
  1. OFATUMUMAB [Suspect]
     Indication: DIFFUSE LARGE B-CELL LYMPHOMA
     Dosage: 1000MG CYCLIC
     Route: 042
     Dates: start: 20130923, end: 20131125
  2. BENDAMUSTINE [Suspect]
     Indication: DIFFUSE LARGE B-CELL LYMPHOMA
     Dosage: 164MG CYCLIC
     Route: 042
     Dates: start: 20130923, end: 20131126
  3. CARVEDILOL [Concomitant]
     Indication: BLOOD PRESSURE INCREASED
     Dates: start: 20130905, end: 20140214
  4. PRAVASTATIN [Concomitant]
     Indication: BLOOD CHOLESTEROL INCREASED
     Dates: start: 20130905, end: 20140214
  5. CETIRIZINE [Concomitant]
     Indication: MULTIPLE ALLERGIES
     Dates: start: 20130905, end: 20140214
  6. CANDESARTAN [Concomitant]
     Indication: BLOOD PRESSURE INCREASED
     Dates: start: 20130905, end: 20140214
  7. ALLOPURINOL [Concomitant]
     Indication: PROPHYLAXIS
     Dates: start: 20130905, end: 20140214
  8. ONDANSETRON [Concomitant]
     Indication: NAUSEA
     Dates: start: 20130912, end: 20140214
  9. ACYCLOVIR [Concomitant]
     Indication: PROPHYLAXIS
     Dates: start: 20130912, end: 20140214
  10. PROCHLORPERAZINE MALEATE [Concomitant]
     Indication: NAUSEA
     Dates: start: 20130913, end: 20140214
  11. LIDOCAINE + PRILOCAINE [Concomitant]
     Indication: PRODUCT USED FOR UNKNOWN INDICATION
     Dates: start: 20130913, end: 20130913
  12. AMLODIPINE [Concomitant]
     Indication: BLOOD PRESSURE INCREASED
     Dates: start: 20130909, end: 20131226
  13. ASPIRIN [Concomitant]
     Indication: CARDIOVASCULAR EVENT PROPHYLAXIS
     Dates: start: 20130905, end: 20131229
  14. CLOPIDOGREL [Concomitant]
     Indication: PLATELET AGGREGATION INHIBITION
     Dates: start: 20130905, end: 20131029
  15. CHLORPROMAZINE [Concomitant]
     Indication: HICCUPS
     Dates: start: 20131016
  16. FLUVIRIN [Concomitant]
     Indication: INFLUENZA IMMUNISATION
     Dates: start: 20131029, end: 20131029
  17. LORAZEPAM [Concomitant]
     Indication: HICCUPS
     Dates: start: 20131126
  18. PANTOPRAZOLE [Concomitant]
     Indication: PROPHYLAXIS
     Dates: start: 20131031, end: 20140214
  19. CEFPODOXIME [Concomitant]
     Indication: ANTIBIOTIC THERAPY
     Dates: start: 20131219, end: 20131225
  20. TRAZODONE [Concomitant]
     Indication: DEPRESSION
     Dates: start: 20131230, end: 20140214
  21. FOLIC ACID [Concomitant]
     Indication: HAEMOGLOBIN DECREASED
     Dates: start: 20131230, end: 20140214
  22. VITAMIN + MINERAL SUPPLEMENT [Concomitant]
     Indication: HAEMOGLOBIN DECREASED
     Dates: start: 20131230, end: 20140214

REACTIONS (2)
  - Pneumonia [Recovering/Resolving]
  - Death [Fatal]
